FAERS Safety Report 10760021 (Version 1)
Quarter: 2015Q1

REPORT INFORMATION
  Report Type: Spontaneous
  Country: IT (occurrence: IT)
  Receive Date: 20150203
  Receipt Date: 20150203
  Transmission Date: 20150721
  Serious: Yes (Hospitalization)
  Sender: FDA-Public Use
  Company Number: PHHY2015IT010271

PATIENT
  Sex: Female

DRUGS (2)
  1. DIAZEPAM. [Suspect]
     Active Substance: DIAZEPAM
     Indication: DRUG ABUSE
     Dosage: 10 ML, ONCE/SINGLE
     Route: 048
     Dates: start: 20140903, end: 20140903
  2. LORAZEPAM. [Suspect]
     Active Substance: LORAZEPAM
     Indication: DRUG ABUSE
     Dosage: 50 MG, ONCE/SINGLE
     Route: 048
     Dates: start: 20140903, end: 20140903

REACTIONS (4)
  - Dysarthria [Recovered/Resolved]
  - Poisoning [Recovered/Resolved]
  - Drug abuse [Recovered/Resolved]
  - Asthenia [Recovered/Resolved]

NARRATIVE: CASE EVENT DATE: 20140903
